FAERS Safety Report 24674214 (Version 1)
Quarter: 2024Q4

REPORT INFORMATION
  Report Type: Spontaneous
  Country: US (occurrence: US)
  Receive Date: 20241128
  Receipt Date: 20241128
  Transmission Date: 20250114
  Serious: Yes (Other)
  Sender: CSL BEHRING
  Company Number: US-BEH-2024186516

PATIENT
  Sex: Female

DRUGS (2)
  1. HUMATE-P [Suspect]
     Active Substance: HUMAN COAGULATION FACTOR VIII/VON WILLEBRAND FACTOR COMPLEX
     Indication: Von Willebrand^s disease
     Dosage: 3250 RCOF UNITS, AS NEEDED (STRENGHT: 1200)
     Route: 042
     Dates: start: 202409
  2. HUMATE-P [Suspect]
     Active Substance: HUMAN COAGULATION FACTOR VIII/VON WILLEBRAND FACTOR COMPLEX
     Dosage: 3250 RCOF UNITS, AS NEEDED (STRENGHT: 2400)
     Route: 042
     Dates: start: 202409

REACTIONS (2)
  - Syncope [Unknown]
  - Vaginal haemorrhage [Not Recovered/Not Resolved]
